FAERS Safety Report 7688983-8 (Version None)
Quarter: 2011Q3

REPORT INFORMATION
  Report Type: 
  Country: None (occurrence: None)
  Receive Date: 20110817
  Receipt Date: 20110810
  Transmission Date: 20111222
  Serious: Yes (Death, Hospitalization, Other)
  Sender: FDA-Public Use
  Company Number: PHHY2011IR72751

PATIENT
  Age: 33 Year
  Sex: Female

DRUGS (3)
  1. PREDNISOLONE [Concomitant]
     Indication: RENAL TRANSPLANT
     Dosage: 5 MG,DAILY
  2. SANDIMMUNE [Suspect]
     Indication: RENAL TRANSPLANT
     Dosage: 175 MG, DAILY
  3. MYCOPHENOLATE MOFETIL [Concomitant]
     Indication: RENAL TRANSPLANT
     Dosage: 100 MG, BID

REACTIONS (11)
  - HYDROCEPHALUS [None]
  - HAEMOGLOBIN DECREASED [None]
  - DEPRESSED LEVEL OF CONSCIOUSNESS [None]
  - CENTRAL NERVOUS SYSTEM LESION [None]
  - LYMPHADENOPATHY [None]
  - ASPERGILLOSIS [None]
  - HEMIPARESIS [None]
  - ENCEPHALITIS [None]
  - TUBERCULOSIS [None]
  - SPLENOMEGALY [None]
  - PYREXIA [None]
